FAERS Safety Report 12916052 (Version 1)
Quarter: 2016Q4

REPORT INFORMATION
  Report Type: Report from Study
  Country: US (occurrence: US)
  Receive Date: 20161104
  Receipt Date: 20161104
  Transmission Date: 20170207
  Serious: Yes (Hospitalization)
  Sender: FDA-Public Use
  Company Number: US-PFIZER INC-HQWYE503217NOV04

PATIENT
  Age: 61 Year
  Sex: Female

DRUGS (1)
  1. METHOTREXATE SODIUM. [Suspect]
     Active Substance: METHOTREXATE SODIUM
     Indication: BREAST CANCER
     Dosage: 155 MG, SINGLE
     Route: 037

REACTIONS (6)
  - Seizure [Recovered/Resolved with Sequelae]
  - Accidental overdose [Unknown]
  - Drug administration error [Unknown]
  - Somnolence [Recovered/Resolved with Sequelae]
  - Confusional state [Recovered/Resolved with Sequelae]
  - Hypertension [Recovered/Resolved with Sequelae]
